FAERS Safety Report 12325997 (Version 2)
Quarter: 2016Q3

REPORT INFORMATION
  Report Type: Report from Study
  Country: CA (occurrence: CA)
  Receive Date: 20160503
  Receipt Date: 20160704
  Transmission Date: 20161109
  Serious: Yes (Hospitalization)
  Sender: FDA-Public Use
  Company Number: CA-ROCHE-1535943

PATIENT
  Age: 29 Year
  Sex: Female

DRUGS (8)
  1. AZATHIOPRINE. [Suspect]
     Active Substance: AZATHIOPRINE
     Indication: ANTI-NEUTROPHIL CYTOPLASMIC ANTIBODY POSITIVE VASCULITIS
     Dosage: LAST DOSE GIVEN PRIOR TO SAE 23/JUN/2015, AZATHIOPRINE MAINTENANCE DOSE WAS 175 MG, DAILY
     Route: 048
     Dates: start: 20150305
  2. RITUXIMAB [Suspect]
     Active Substance: RITUXIMAB
     Indication: ANTI-NEUTROPHIL CYTOPLASMIC ANTIBODY POSITIVE VASCULITIS
     Dosage: ON 20/NOV/2014, 27/NOV/2014, 04/DEC/2014  - LAST DOSE PRIOR TO SAE (705 MG).
     Route: 042
     Dates: start: 20141113
  3. HYDROCHLOROTHIAZIDE/RAMIPRIL [Concomitant]
     Active Substance: HYDROCHLOROTHIAZIDE\RAMIPRIL
     Dosage: 10- 25 MG
     Route: 048
  4. FOLIC ACID. [Concomitant]
     Active Substance: FOLIC ACID
     Route: 065
     Dates: start: 201508
  5. PREDNISONE. [Concomitant]
     Active Substance: PREDNISONE
     Dosage: ON UNKNOWN DATE AT 2016
     Route: 065
  6. METHOTREXATE. [Suspect]
     Active Substance: METHOTREXATE
     Indication: ANTI-NEUTROPHIL CYTOPLASMIC ANTIBODY POSITIVE VASCULITIS
     Dosage: LAST DOSE PRIOT TO SAE - 10/APR/2016.
     Route: 048
     Dates: start: 20150730
  7. ALESSE 28 [Concomitant]
     Active Substance: ETHINYL ESTRADIOL\LEVONORGESTREL
     Route: 065
     Dates: start: 201601
  8. SEPTRA DS [Concomitant]
     Active Substance: SULFAMETHOXAZOLE\TRIMETHOPRIM
     Dosage: DOSE: 800/160 MG ON MONDAY, WEDNESDAY AND FRIDAY
     Route: 065

REACTIONS (3)
  - Laryngeal stenosis [Recovered/Resolved with Sequelae]
  - Laryngeal stenosis [Recovered/Resolved with Sequelae]
  - Laryngeal stenosis [Recovered/Resolved with Sequelae]

NARRATIVE: CASE EVENT DATE: 20141231
